FAERS Safety Report 9316410 (Version 1)
Quarter: 2013Q2

REPORT INFORMATION
  Report Type: Spontaneous
  Country: US (occurrence: US)
  Receive Date: 20130530
  Receipt Date: 20130530
  Transmission Date: 20140414
  Serious: No
  Sender: FDA-Public Use
  Company Number: US-TEVA-407735USA

PATIENT
  Age: 83 Year
  Sex: Female
  Weight: 52.21 kg

DRUGS (4)
  1. AZILECT [Suspect]
     Indication: PARKINSON^S DISEASE
     Dates: start: 201305, end: 201305
  2. VITAMINS [Concomitant]
  3. CALCIUM [Concomitant]
  4. VITAMIN D [Concomitant]

REACTIONS (4)
  - Arthralgia [Unknown]
  - Feeling abnormal [Unknown]
  - Somnambulism [Unknown]
  - Amnesia [Unknown]
